FAERS Safety Report 12693717 (Version 1)
Quarter: 2016Q3

REPORT INFORMATION
  Report Type: Spontaneous
  Country: US (occurrence: US)
  Receive Date: 20160829
  Receipt Date: 20160829
  Transmission Date: 20161109
  Serious: No
  Sender: FDA-Public Use
  Company Number: US-PFIZER INC-2016379288

PATIENT
  Age: 60 Year
  Sex: Female
  Weight: 68 kg

DRUGS (1)
  1. PREMARIN [Suspect]
     Active Substance: ESTROGENS, CONJUGATED
     Indication: ATROPHY
     Dosage: USING NOT ON A REGULAR BASIS AND APPLIES TO OUTSIDE OF VAGINAL AREA

REACTIONS (4)
  - Vulvovaginal pruritus [Unknown]
  - Expired product administered [Unknown]
  - Drug ineffective [Unknown]
  - Intentional product misuse [Unknown]
